FAERS Safety Report 17531595 (Version 1)
Quarter: 2020Q1

REPORT INFORMATION
  Report Type: Spontaneous
  Country: US (occurrence: US)
  Receive Date: 20200311
  Receipt Date: 20200311
  Transmission Date: 20200409
  Serious: Yes (Hospitalization)
  Sender: FDA-Public Use
  Company Number: None

PATIENT
  Age: 18 Year
  Sex: Female

DRUGS (5)
  1. OXYBUTYNIN 15MG ER [Concomitant]
     Dates: start: 20191218
  2. HUMIRA [Suspect]
     Active Substance: ADALIMUMAB
     Dosage: ?          OTHER FREQUENCY:EVERY OTHER WEEK;?
     Route: 058
  3. SERTRALINE, 25MG, 50MG [Concomitant]
     Dates: start: 20200118
  4. MERCAPTOPUR 50MG [Concomitant]
     Dates: start: 20200203
  5. OMEPRAZOLE, 20MG [Concomitant]
     Dates: start: 20191028

REACTIONS (1)
  - Therapy cessation [None]

NARRATIVE: CASE EVENT DATE: 20200131
